FAERS Safety Report 9274955 (Version 1)
Quarter: 2013Q2

REPORT INFORMATION
  Report Type: Spontaneous
  Country: ES (occurrence: ES)
  Receive Date: 20130507
  Receipt Date: 20130507
  Transmission Date: 20140414
  Serious: Yes (Hospitalization)
  Sender: FDA-Public Use
  Company Number: ES-TEVA-401143ISR

PATIENT
  Age: 68 Year
  Sex: Female

DRUGS (8)
  1. OXALIPLATINO TEVA 5 MG/ML CONCENTRADO PARA SOLUCI?N PARA PERFUSION [Suspect]
     Indication: ADENOCARCINOMA GASTRIC
     Route: 042
     Dates: start: 20130301, end: 20130301
  2. AMLODIPINE [Concomitant]
     Dosage: TOTAL DOSE:10MG
     Route: 048
     Dates: start: 20130301
  3. AMLODIPINE [Concomitant]
     Dosage: 79.5MG/CYCLIC
     Route: 042
     Dates: start: 20130301, end: 20130301
  4. EPIRRUBICIN [Concomitant]
  5. FORTASEC 2 MG CAPSULAS DURAS [Concomitant]
     Route: 048
     Dates: start: 20130301
  6. MYCOSTATIN 100.000 UI/ML SUSPENSI?N ORAL [Concomitant]
     Route: 048
     Dates: start: 20130301
  7. PRIMPERAN 10MG COMPRIMIDOS [Concomitant]
     Route: 048
     Dates: start: 20130301
  8. XELODA [Concomitant]
     Indication: ADENOCARCINOMA GASTRIC
     Dosage: TOTAL DOSE:2000 MG
     Route: 048
     Dates: start: 20130301

REACTIONS (3)
  - Dyspnoea [Recovered/Resolved]
  - Paraesthesia oral [Recovering/Resolving]
  - Stridor [Recovered/Resolved]
